FAERS Safety Report 20530101 (Version 3)
Quarter: 2022Q1

REPORT INFORMATION
  Report Type: Spontaneous
  Country: JP (occurrence: JP)
  Receive Date: 20220301
  Receipt Date: 20220308
  Transmission Date: 20220423
  Serious: Yes (Other)
  Sender: FDA-Public Use
  Company Number: JP-BRISTOL-MYERS SQUIBB COMPANY-BMS-2021-118426

PATIENT
  Age: 78 Year
  Sex: Male
  Weight: 58 kg

DRUGS (6)
  1. YERVOY [Suspect]
     Active Substance: IPILIMUMAB
     Indication: Non-small cell lung cancer
     Dosage: 50 MILLIGRAM
     Route: 041
     Dates: start: 20210122
  2. OPDIVO [Suspect]
     Active Substance: NIVOLUMAB
     Indication: Non-small cell lung cancer recurrent
     Dosage: 360 MILLIGRAM
     Route: 041
     Dates: start: 20210122
  3. ESZOPICLONE [Concomitant]
     Active Substance: ESZOPICLONE
     Indication: Product used for unknown indication
     Dosage: 1 MILLIGRAM
     Route: 065
  4. SILODOSIN [Concomitant]
     Active Substance: SILODOSIN
     Indication: Product used for unknown indication
     Dosage: 4 MILLIGRAM
     Route: 065
  5. CINAL [ASCORBIC ACID;CALCIUM PANTOTHENATE] [Concomitant]
     Indication: Product used for unknown indication
     Dosage: UNK
     Route: 065
  6. HERBALS [Concomitant]
     Active Substance: HERBALS
     Indication: Product used for unknown indication
     Dosage: UNK
     Route: 065

REACTIONS (2)
  - Thyroid disorder [Recovering/Resolving]
  - Immune-mediated endocrinopathy [Unknown]

NARRATIVE: CASE EVENT DATE: 20210528
